FAERS Safety Report 6767623-6 (Version None)
Quarter: 2010Q2

REPORT INFORMATION
  Report Type: 
  Country: None (occurrence: None)
  Receive Date: 20100614
  Receipt Date: 20100601
  Transmission Date: 20101027
  Serious: Yes (Hospitalization, Other)
  Sender: FDA-Public Use
  Company Number: US-ELI_LILLY_AND_COMPANY-US201003008650

PATIENT
  Sex: Female

DRUGS (1)
  1. FORTEO [Suspect]
     Indication: OSTEOPOROSIS
     Dosage: 20 UG, DAILY (1/D)
     Dates: start: 20090501, end: 20100310

REACTIONS (5)
  - COLONOSCOPY [None]
  - INTRA-ABDOMINAL HAEMORRHAGE [None]
  - PAIN [None]
  - POSTOPERATIVE WOUND INFECTION [None]
  - SPLEEN DISORDER [None]
